FAERS Safety Report 7522603-8 (Version None)
Quarter: 2011Q2

REPORT INFORMATION
  Report Type: 
  Country: None (occurrence: None)
  Receive Date: 20110603
  Receipt Date: 20110526
  Transmission Date: 20111010
  Serious: Yes (Other)
  Sender: FDA-Public Use
  Company Number: HU-PFIZER INC-2011110214

PATIENT
  Age: 84 Year
  Sex: Male
  Weight: 92 kg

DRUGS (5)
  1. LYRICA [Suspect]
     Indication: NEURALGIA
     Dosage: 150 MG, 2X/DAY
     Route: 048
     Dates: start: 20010101, end: 20051201
  2. LYRICA [Suspect]
     Dosage: 150 MG, 1X/DAY
     Route: 048
     Dates: start: 20051201
  3. ACCUZIDE [Concomitant]
     Dosage: 20 MG 1X/DAY IN THE MORNINGS AND 10 MG 1X/DAY IN THE EVENINGS
     Dates: start: 20010101
  4. GINKOBIL [Concomitant]
     Dosage: UNK
     Dates: start: 20070101
  5. CATAFLAM [Concomitant]
     Dosage: UNK
     Dates: start: 20010101

REACTIONS (4)
  - FALL [None]
  - DIZZINESS [None]
  - LOWER LIMB FRACTURE [None]
  - HYPOAESTHESIA [None]
